FAERS Safety Report 16844099 (Version 1)
Quarter: 2019Q3

REPORT INFORMATION
  Report Type: Spontaneous
  Country: US (occurrence: US)
  Receive Date: 20190802
  Receipt Date: 20190802
  Transmission Date: 20191005
  Serious: Yes (Other)
  Sender: FDA-Public Use
  Company Number: None

PATIENT
  Age: 26 Year
  Sex: Male

DRUGS (16)
  1. ALBUTAROL [Concomitant]
  2. ARIPIPRAZOLE. [Concomitant]
     Active Substance: ARIPIPRAZOLE
  3. PAROXETINE. [Concomitant]
     Active Substance: PAROXETINE
  4. SURCRALFATE [Concomitant]
  5. ALLOPUUINOL [Concomitant]
  6. OXYCODO/APAP [Concomitant]
  7. NICOTINE. [Concomitant]
     Active Substance: NICOTINE
  8. ONDANSERTON [Concomitant]
  9. TEMASEPZAM [Concomitant]
  10. TRAZODONE [Concomitant]
     Active Substance: TRAZODONE HYDROCHLORIDE
  11. BUDESONIDE. [Suspect]
     Active Substance: BUDESONIDE
  12. BUPROPN [Concomitant]
  13. PANTOPRAZOLE [Concomitant]
     Active Substance: PANTOPRAZOLE
  14. STELARA [Suspect]
     Active Substance: USTEKINUMAB
     Indication: CROHN^S DISEASE
     Route: 058
     Dates: start: 20181129
  15. DILTAZEM [Concomitant]
  16. PRMETHAZINE [Concomitant]

REACTIONS (3)
  - Neoplasm malignant [None]
  - Condition aggravated [None]
  - Therapy cessation [None]

NARRATIVE: CASE EVENT DATE: 20190726
